FAERS Safety Report 9853648 (Version 1)
Quarter: 2014Q1

REPORT INFORMATION
  Report Type: Spontaneous
  Country: US (occurrence: US)
  Receive Date: 20140129
  Receipt Date: 20140129
  Transmission Date: 20141002
  Serious: No
  Sender: FDA-Public Use
  Company Number: US-TEVA-455632USA

PATIENT
  Sex: Female
  Weight: 77.18 kg

DRUGS (5)
  1. PROAIR HFA [Suspect]
     Indication: RESPIRATORY DISORDER
     Route: 055
  2. PROAIR HFA [Suspect]
     Indication: ANAPHYLACTIC REACTION
  3. NEXIUM [Concomitant]
     Indication: GASTROOESOPHAGEAL REFLUX DISEASE
  4. ZOCOR [Concomitant]
     Indication: BLOOD CHOLESTEROL
  5. CYMBALTA [Concomitant]
     Indication: ANXIETY

REACTIONS (1)
  - Off label use [Unknown]
